FAERS Safety Report 8507968-2 (Version None)
Quarter: 2012Q2

REPORT INFORMATION
  Report Type: 
  Country: None (occurrence: None)
  Receive Date: 20120405
  Receipt Date: 20091020
  Transmission Date: 20120825
  Serious: Yes (Other)
  Sender: FDA-Public Use
  Company Number: PHEH2009US06736

PATIENT
  Age: 73 Year
  Sex: Female
  Weight: 61.7 kg

DRUGS (9)
  1. ACETAMINOPHEN [Concomitant]
  2. RECLAST [Suspect]
     Indication: OSTEOPOROSIS
     Dosage: 5 MG, ONCE YEARLY, IV INFUSION
     Route: 042
     Dates: start: 20090515, end: 20090515
  3. ZOMETA [Suspect]
     Indication: OSTEOPOROSIS
     Dosage: 4 MG TWICE YEARLY, INTRAVENOUS
     Route: 042
     Dates: start: 20080401
  4. SPIRONOLACTONE [Concomitant]
  5. COREG [Concomitant]
  6. NEXIUM [Concomitant]
  7. LEFLUNOMIDE [Concomitant]
  8. ARIMIDEX [Concomitant]
  9. LISINOPRIL [Concomitant]

REACTIONS (6)
  - BONE DISORDER [None]
  - PAIN IN JAW [None]
  - ARTHRALGIA [None]
  - ERYTHEMA [None]
  - OSTEONECROSIS [None]
  - OEDEMA [None]
